FAERS Safety Report 10574104 (Version 2)
Quarter: 2014Q4

REPORT INFORMATION
  Report Type: Spontaneous
  Country: US (occurrence: US)
  Receive Date: 20141110
  Receipt Date: 20141126
  Transmission Date: 20150529
  Serious: Yes (Death, Life-Threatening, Hospitalization, Other)
  Sender: FDA-Public Use
  Company Number: US-009507513-1411USA003253

PATIENT
  Sex: Male
  Weight: 77.98 kg

DRUGS (1)
  1. JANUVIA [Suspect]
     Active Substance: SITAGLIPTIN PHOSPHATE
     Indication: TYPE 2 DIABETES MELLITUS
     Dosage: 50 MG, QD
     Route: 048
     Dates: start: 20081125, end: 20110926

REACTIONS (24)
  - Dehydration [Recovering/Resolving]
  - Acute kidney injury [Recovering/Resolving]
  - Spinal osteoarthritis [Unknown]
  - Pancreatic stent placement [Unknown]
  - Death [Fatal]
  - Cough [Unknown]
  - Benign prostatic hyperplasia [Unknown]
  - Adenocarcinoma pancreas [Unknown]
  - Rales [Unknown]
  - Depression [Unknown]
  - Chest pain [Unknown]
  - Vision blurred [Unknown]
  - Drug ineffective [Unknown]
  - Hyperglycaemia [Recovering/Resolving]
  - Diabetes mellitus inadequate control [Unknown]
  - Post-traumatic stress disorder [Unknown]
  - Bundle branch block right [Unknown]
  - Anaemia [Unknown]
  - Dyspnoea [Unknown]
  - Night sweats [Unknown]
  - Neuropathy peripheral [Unknown]
  - Metastases to liver [Unknown]
  - Renal cyst [Unknown]
  - Clubbing [Unknown]

NARRATIVE: CASE EVENT DATE: 2013
